FAERS Safety Report 5239917-7 (Version None)
Quarter: 2007Q1

REPORT INFORMATION
  Report Type: 
  Country: None (occurrence: None)
  Receive Date: 20070216
  Receipt Date: 20070205
  Transmission Date: 20070707
  Serious: Yes (Other)
  Sender: FDA-Public Use
  Company Number: BR-PFIZER INC-2005155941

PATIENT
  Sex: Female

DRUGS (2)
  1. XALATAN [Suspect]
     Indication: GLAUCOMA
     Route: 047
  2. PURAN T4 [Concomitant]
     Route: 048

REACTIONS (11)
  - ANAEMIA [None]
  - BLOOD TRIGLYCERIDES INCREASED [None]
  - BLOOD URIC ACID INCREASED [None]
  - CYST [None]
  - GASTRIC NEOPLASM [None]
  - GASTRIC ULCER [None]
  - GOUT [None]
  - HYPERTENSION [None]
  - HYPOTHYROIDISM [None]
  - RENAL NEOPLASM [None]
  - WEIGHT DECREASED [None]
